FAERS Safety Report 4344853-4 (Version None)
Quarter: 2004Q2

REPORT INFORMATION
  Report Type: 
  Country: None (occurrence: None)
  Receive Date: 20040420
  Receipt Date: 20040407
  Transmission Date: 20050107
  Serious: Yes (Hospitalization, Disabling)
  Sender: FDA-Public Use
  Company Number: 04P-163-0257102

PATIENT
  Sex: Male

DRUGS (5)
  1. DEPAKOTE [Suspect]
     Indication: DEPRESSION
     Dates: start: 20000728
  2. LAMOTRIGINE [Suspect]
     Indication: ANXIETY
     Dosage: SEE IMAGE
     Dates: start: 20020421, end: 20020505
  3. LAMOTRIGINE [Suspect]
     Indication: DEPRESSION
     Dosage: SEE IMAGE
     Dates: start: 20020421, end: 20020505
  4. LAMOTRIGINE [Suspect]
     Indication: ANXIETY
     Dosage: SEE IMAGE
     Dates: start: 20020505
  5. LAMOTRIGINE [Suspect]
     Indication: DEPRESSION
     Dosage: SEE IMAGE
     Dates: start: 20020505

REACTIONS (15)
  - ANXIETY [None]
  - DEPRESSED LEVEL OF CONSCIOUSNESS [None]
  - DRUG INTERACTION [None]
  - DYSPNOEA [None]
  - EXOPHTHALMOS [None]
  - EYELID FUNCTION DISORDER [None]
  - FATIGUE [None]
  - FEELING ABNORMAL [None]
  - LACRIMATION INCREASED [None]
  - PHOTOPHOBIA [None]
  - PHOTOSENSITIVITY REACTION [None]
  - PRODUCTIVE COUGH [None]
  - STEVENS-JOHNSON SYNDROME [None]
  - TOXIC EPIDERMAL NECROLYSIS [None]
  - VISUAL DISTURBANCE [None]
